FAERS Safety Report 24096090 (Version 1)
Quarter: 2024Q3

REPORT INFORMATION
  Report Type: Spontaneous
  Country: US (occurrence: US)
  Receive Date: 20240716
  Receipt Date: 20240716
  Transmission Date: 20241017
  Serious: No
  Sender: SANOFI AVENTIS
  Company Number: US-SA-SAC20240712000291

PATIENT
  Age: 71 Year
  Sex: Male

DRUGS (20)
  1. DUPIXENT [Suspect]
     Active Substance: DUPILUMAB
     Indication: Dermatitis atopic
     Dosage: UNK
     Route: 058
  2. DUPIXENT [Suspect]
     Active Substance: DUPILUMAB
     Dosage: 300 MG, QOW
     Route: 058
     Dates: start: 20240703
  3. ATORVASTATIN [Concomitant]
     Active Substance: ATORVASTATIN
  4. AZELASTINE [Concomitant]
     Active Substance: AZELASTINE\AZELASTINE HYDROCHLORIDE
  5. CALCIUM [Concomitant]
     Active Substance: CALCIUM
  6. ACIDOPHILUS [Concomitant]
     Active Substance: LACTOBACILLUS ACIDOPHILUS
  7. GABAPENTIN [Concomitant]
     Active Substance: GABAPENTIN
  8. MELOXICAM [Concomitant]
     Active Substance: MELOXICAM
  9. MAGNESIUM [Concomitant]
     Active Substance: MAGNESIUM
  10. MONTELUKAST [Concomitant]
     Active Substance: MONTELUKAST SODIUM
  11. OMEPRAZOLE [Concomitant]
     Active Substance: OMEPRAZOLE
  12. METOPROLOL [Concomitant]
     Active Substance: METOPROLOL
  13. CLINDAMYCIN [Concomitant]
     Active Substance: CLINDAMYCIN
  14. LEVOCETIRIZINE [Concomitant]
     Active Substance: LEVOCETIRIZINE
  15. VITAMINS NOS [Concomitant]
     Active Substance: VITAMINS
  16. NITROGLYCERIN [Concomitant]
     Active Substance: NITROGLYCERIN
  17. TAMSULOSIN [Concomitant]
     Active Substance: TAMSULOSIN
  18. TRAMADOL HCL [Concomitant]
     Active Substance: TRAMADOL HYDROCHLORIDE
  19. FLAXSEED [Concomitant]
     Active Substance: FLAX SEED
  20. APPLE CIDER [Concomitant]

REACTIONS (6)
  - Dacryocanaliculitis [Not Recovered/Not Resolved]
  - General physical health deterioration [Not Recovered/Not Resolved]
  - Fatigue [Not Recovered/Not Resolved]
  - Heart rate decreased [Not Recovered/Not Resolved]
  - Swelling of eyelid [Not Recovered/Not Resolved]
  - Dermatitis atopic [Not Recovered/Not Resolved]

NARRATIVE: CASE EVENT DATE: 20240601
